FAERS Safety Report 10547776 (Version 1)
Quarter: 2014Q4

REPORT INFORMATION
  Report Type: Spontaneous
  Country: GB (occurrence: None)
  Receive Date: 20141024
  Receipt Date: 20141024
  Transmission Date: 20150529
  Serious: Yes (Life-Threatening, Disabling, Other)
  Sender: FDA-Public Use
  Company Number: GB-DEXPHARM-20140657

PATIENT
  Age: 45 Year
  Sex: Female

DRUGS (7)
  1. MOVICOL [Concomitant]
     Active Substance: POLYETHYLENE GLYCOL 3350\POTASSIUM CHLORIDE\SODIUM BICARBONATE\SODIUM CHLORIDE
  2. ZOPIDONE [Concomitant]
  3. DICLOFENAC ACTIVE SUBSTANCES: DICLOFENAC [Suspect]
     Active Substance: DICLOFENAC
     Indication: OSTEOARTHRITIS
     Dosage: 25 MG  SEP DOSAGES/ INTERVAL: 3 IN 1 DAYS, CUMULATIVE DOSE :825 MG
     Route: 048
     Dates: start: 20140611, end: 20140903
  4. BUTRANS [Concomitant]
     Active Substance: BUPRENORPHINE
  5. VITAMIN SUPPLEMENT [Concomitant]
     Active Substance: VITAMINS
  6. LANSOPRAZOL [Concomitant]
     Active Substance: LANSOPRAZOLE
  7. VOLTAROL [Concomitant]
     Active Substance: DICLOFENAC SODIUM

REACTIONS (32)
  - Depression [None]
  - Arthralgia [None]
  - Sleep disorder [None]
  - Joint swelling [None]
  - Mental impairment [None]
  - Abdominal distension [None]
  - Swelling face [None]
  - Vomiting [None]
  - Blepharospasm [None]
  - Chest discomfort [None]
  - Choking [None]
  - Drug ineffective [None]
  - Memory impairment [None]
  - Hearing impaired [None]
  - Abnormal dreams [None]
  - Swollen tongue [None]
  - Inflammation [None]
  - Dyspepsia [None]
  - Muscle spasticity [None]
  - Mouth swelling [None]
  - Confusional state [None]
  - Dyspnoea [None]
  - Feeling hot [None]
  - Lymphadenopathy [None]
  - Weight bearing difficulty [None]
  - Lip swelling [None]
  - Dysstasia [None]
  - Vision blurred [None]
  - Chest pain [None]
  - Gait disturbance [None]
  - Throat tightness [None]
  - Muscle twitching [None]

NARRATIVE: CASE EVENT DATE: 201406
